FAERS Safety Report 6110157-2 (Version None)
Quarter: 2009Q1

REPORT INFORMATION
  Report Type: 
  Country: None (occurrence: None)
  Receive Date: 20090310
  Receipt Date: 20090305
  Transmission Date: 20090719
  Serious: Yes (Hospitalization)
  Sender: FDA-Public Use
  Company Number: FR-ABBOTT-09P-056-0560791-00

PATIENT
  Sex: Female

DRUGS (10)
  1. MONOZECLAR [Suspect]
     Indication: DRUG USE FOR UNKNOWN INDICATION
     Route: 048
     Dates: start: 20090105, end: 20090110
  2. FLUINDIONE [Interacting]
     Indication: DRUG USE FOR UNKNOWN INDICATION
     Route: 048
     Dates: start: 20060910, end: 20090110
  3. FLUINDIONE [Interacting]
     Route: 048
     Dates: start: 20090119
  4. URAPIDIL [Concomitant]
     Indication: HYPERTENSION
     Route: 048
     Dates: start: 20050301
  5. BROMAZEPAM [Concomitant]
     Indication: ANXIETY
     Route: 048
  6. FENOFIBRATE [Concomitant]
     Indication: HYPOCHOLESTEROLAEMIA
     Route: 048
     Dates: start: 20050915, end: 20090111
  7. LANSOPRAZOLE [Concomitant]
     Indication: GASTRODUODENAL ULCER
     Route: 048
     Dates: start: 20070524
  8. ATENOLOL [Concomitant]
     Indication: HYPERTENSION
     Route: 048
     Dates: start: 20061121
  9. METFORMIN HCL [Concomitant]
     Indication: DIABETES MELLITUS
     Route: 048
     Dates: start: 20070831
  10. VENLAFAXINE HCL [Concomitant]
     Indication: DEPRESSION
     Route: 048
     Dates: start: 20080505, end: 20090111

REACTIONS (2)
  - DRUG INTERACTION [None]
  - HAEMATURIA [None]
